FAERS Safety Report 4657985-8 (Version None)
Quarter: 2005Q2

REPORT INFORMATION
  Report Type: 
  Country: None (occurrence: None)
  Receive Date: 20050504
  Receipt Date: 20050110
  Transmission Date: 20051028
  Serious: Yes (Other)
  Sender: FDA-Public Use
  Company Number: PHEH2005US00755

PATIENT
  Age: 70 Year
  Sex: Female
  Weight: 59.9 kg

DRUGS (4)
  1. DIOVAN HCT [Suspect]
     Indication: HYPERTENSION
     Dosage: 80 MG VA//12.5 MG HCT QD ORAL
     Route: 048
     Dates: start: 20041001, end: 20041228
  2. Z-PAK (AZITHROMYCIN) [Suspect]
  3. AMLODIPINE [Concomitant]
  4. ATORVASTATIN [Concomitant]

REACTIONS (7)
  - ERYTHEMA [None]
  - EXCORIATION [None]
  - HYPERSENSITIVITY [None]
  - NASOPHARYNGITIS [None]
  - PRURITUS [None]
  - RASH [None]
  - SWELLING FACE [None]
